FAERS Safety Report 5484167-2 (Version None)
Quarter: 2007Q4

REPORT INFORMATION
  Report Type: 
  Country: None (occurrence: None)
  Receive Date: 20071012
  Receipt Date: 20070816
  Transmission Date: 20080405
  Serious: Yes (Other)
  Sender: FDA-Public Use
  Company Number: US-ASTRAZENECA-2007UW19812

PATIENT
  Sex: Female

DRUGS (1)
  1. SYMBICORT [Suspect]
     Dosage: 160 / 4.5 UG
     Route: 055
     Dates: start: 20070809, end: 20070813

REACTIONS (2)
  - THROAT TIGHTNESS [None]
  - URTICARIA [None]
